FAERS Safety Report 6408951-3 (Version None)
Quarter: 2009Q4

REPORT INFORMATION
  Report Type: 
  Country: None (occurrence: None)
  Receive Date: 20091021
  Receipt Date: 20090918
  Transmission Date: 20100525
  Serious: Yes (Hospitalization)
  Sender: FDA-Public Use
  Company Number: FR-BRACCO-000250

PATIENT
  Sex: Male

DRUGS (2)
  1. IOPAMIDOL [Suspect]
     Indication: PULMONARY EMBOLISM
     Route: 042
     Dates: start: 20090423, end: 20090423
  2. IOPAMIDOL [Suspect]
     Indication: COMPUTERISED TOMOGRAM
     Route: 042
     Dates: start: 20090423, end: 20090423

REACTIONS (3)
  - ERYTHEMA [None]
  - EXTRAVASATION [None]
  - INFUSION SITE PAIN [None]
